FAERS Safety Report 13098291 (Version 1)
Quarter: 2017Q1

REPORT INFORMATION
  Report Type: Spontaneous
  Country: FR (occurrence: FR)
  Receive Date: 20170109
  Receipt Date: 20170109
  Transmission Date: 20170428
  Serious: Yes (Hospitalization, Other)
  Sender: FDA-Public Use
  Company Number: FR-ELI_LILLY_AND_COMPANY-FR201612010110

PATIENT
  Age: 37 Year
  Sex: Female

DRUGS (4)
  1. TARDYFERON B9                      /00023601/ [Concomitant]
     Active Substance: FERROUS SULFATE\FOLIC ACID
     Indication: PRODUCT USED FOR UNKNOWN INDICATION
     Dosage: 2 DF, QD
     Route: 065
  2. TRACTOCILE [Concomitant]
     Active Substance: ATOSIBAN
     Indication: PRODUCT USED FOR UNKNOWN INDICATION
     Dosage: UNK, UNKNOWN
     Route: 065
     Dates: start: 20140520, end: 20140521
  3. CYMBALTA [Suspect]
     Active Substance: DULOXETINE HYDROCHLORIDE
     Indication: PRODUCT USED FOR UNKNOWN INDICATION
     Dosage: 1 DF, QD
     Route: 065
  4. ZELITREX [Suspect]
     Active Substance: VALACYCLOVIR HYDROCHLORIDE
     Indication: GENITAL HERPES
     Dosage: UNK, UNKNOWN
     Route: 065
     Dates: start: 20140513, end: 20140519

REACTIONS (7)
  - Maternal exposure during pregnancy [Recovered/Resolved]
  - Fungal infection [Unknown]
  - Premature labour [Not Recovered/Not Resolved]
  - Genital herpes [Unknown]
  - Premature rupture of membranes [Unknown]
  - Urinary tract infection [Unknown]
  - Uterine contractions abnormal [Unknown]

NARRATIVE: CASE EVENT DATE: 20140520
